FAERS Safety Report 13017300 (Version 1)
Quarter: 2016Q4

REPORT INFORMATION
  Report Type: Spontaneous
  Country: US (occurrence: US)
  Receive Date: 20161209
  Receipt Date: 20161209
  Transmission Date: 20170207
  Serious: No
  Sender: FDA-Public Use
  Company Number: None

PATIENT
  Age: 73 Year
  Sex: Male

DRUGS (1)
  1. NEXAVAR [Suspect]
     Active Substance: SORAFENIB
     Indication: RENAL CANCER
     Route: 048
     Dates: start: 20161120, end: 20161128

REACTIONS (5)
  - Blister [None]
  - Contusion [None]
  - Pain in extremity [None]
  - Cellulitis [None]
  - Peripheral swelling [None]

NARRATIVE: CASE EVENT DATE: 20161120
